FAERS Safety Report 4542349-8 (Version None)
Quarter: 2004Q4

REPORT INFORMATION
  Report Type: 
  Country: None (occurrence: None)
  Receive Date: 20041227
  Receipt Date: 20041214
  Transmission Date: 20050328
  Serious: Yes (Other)
  Sender: FDA-Public Use
  Company Number: 2004085399

PATIENT
  Age: 68 Year
  Sex: Female
  Weight: 81.6475 kg

DRUGS (6)
  1. TIKOSYN [Suspect]
     Indication: ILL-DEFINED DISORDER
     Dosage: 1000 MCG (500 MCG, 2 IN 1 D), ORAL
     Route: 048
  2. FOSINOPRIL SODIUM [Concomitant]
  3. SIMVASTATIN (SIMVASTATIN0 [Concomitant]
  4. ATENOLOL [Concomitant]
  5. ACETAMINOPHEN [Concomitant]
  6. SOTALOL HCL [Concomitant]

REACTIONS (10)
  - DEVICE FAILURE [None]
  - ECHOCARDIOGRAM ABNORMAL [None]
  - ENDODONTIC PROCEDURE [None]
  - HYPERTENSION [None]
  - IMPLANTABLE DEFIBRILLATOR MALFUNCTION [None]
  - PAIN [None]
  - SURGERY [None]
  - THERAPY NON-RESPONDER [None]
  - TOOTH INFECTION [None]
  - TREATMENT NONCOMPLIANCE [None]
